FAERS Safety Report 19912508 (Version 1)
Quarter: 2021Q4

REPORT INFORMATION
  Report Type: Report from Study
  Country: US (occurrence: US)
  Receive Date: 20211004
  Receipt Date: 20211004
  Transmission Date: 20220303
  Serious: Yes (Hospitalization, Other)
  Sender: FDA-Public Use
  Company Number: US-VERTEX PHARMACEUTICALS-2021-013498

PATIENT
  Age: 31 Year
  Sex: Female

DRUGS (35)
  1. TRIKAFTA [Suspect]
     Active Substance: ELEXACAFTOR\IVACAFTOR\TEZACAFTOR
     Indication: Cystic fibrosis
     Dosage: 2 TABS AM + 1 TAB PM
     Route: 048
     Dates: start: 20200120
  2. CEFEPIME [Suspect]
     Active Substance: CEFEPIME HYDROCHLORIDE
     Indication: Pseudomonas infection
     Route: 042
  3. CREON [Concomitant]
     Active Substance: PANCRELIPASE AMYLASE\PANCRELIPASE LIPASE\PANCRELIPASE PROTEASE
  4. FAMOTIDINE [Concomitant]
     Active Substance: FAMOTIDINE
  5. FERROUS SULFATE [Concomitant]
     Active Substance: FERROUS SULFATE
  6. GRANISETRON [Concomitant]
     Active Substance: GRANISETRON
  7. BACTRIM [Concomitant]
     Active Substance: SULFAMETHOXAZOLE\TRIMETHOPRIM
  8. TRAMADOL [Concomitant]
     Active Substance: TRAMADOL
  9. URSODIOL [Concomitant]
     Active Substance: URSODIOL
  10. ONDANSETRON [Concomitant]
     Active Substance: ONDANSETRON
  11. AMLODIPINE [Concomitant]
     Active Substance: AMLODIPINE BESYLATE
  12. PREDNISONE [Concomitant]
     Active Substance: PREDNISONE
  13. PROCHLORPERAZINE [Concomitant]
     Active Substance: PROCHLORPERAZINE
  14. SERTRALINE [Concomitant]
     Active Substance: SERTRALINE HYDROCHLORIDE
  15. TACROLIMUS [Concomitant]
     Active Substance: TACROLIMUS
  16. ATROVENT [Concomitant]
     Active Substance: IPRATROPIUM BROMIDE
  17. DEEP SEA PREMIUM SALINE [Concomitant]
  18. MOMETASONE FUROATE [Concomitant]
     Active Substance: MOMETASONE FUROATE
  19. FLUDROCORTISONE [Concomitant]
     Active Substance: FLUDROCORTISONE
  20. CLONAZEPAM [Concomitant]
     Active Substance: CLONAZEPAM
  21. GABAPENTIN [Concomitant]
     Active Substance: GABAPENTIN
  22. MYCOPHENOLIC ACID [Concomitant]
     Active Substance: MYCOPHENOLIC ACID
  23. BASAGLAR [Concomitant]
     Active Substance: INSULIN GLARGINE
  24. FORTEO [Concomitant]
     Active Substance: TERIPARATIDE
  25. CALCIUM CITRATE [Concomitant]
     Active Substance: CALCIUM CITRATE
  26. VITAMIN C [Concomitant]
     Active Substance: ASCORBIC ACID
  27. DOCUSATE [Concomitant]
     Active Substance: DOCUSATE
  28. FEXOFENADINE [Concomitant]
     Active Substance: FEXOFENADINE HYDROCHLORIDE
  29. GLUCAGON [Concomitant]
     Active Substance: GLUCAGON
  30. FIASP [Concomitant]
     Active Substance: INSULIN ASPART
  31. HYDROMORPHONE [Concomitant]
     Active Substance: HYDROMORPHONE
  32. INSULIN NOS [Concomitant]
     Active Substance: INSULIN NOS
  33. TIZANIDINE HYDROCHLORIDE [Concomitant]
     Active Substance: TIZANIDINE HYDROCHLORIDE
  34. VITAMIN E [Concomitant]
     Active Substance: .ALPHA.-TOCOPHEROL
  35. DUONEB [Concomitant]
     Active Substance: ALBUTEROL SULFATE\IPRATROPIUM BROMIDE

REACTIONS (2)
  - Pneumonia pseudomonal [Recovering/Resolving]
  - Abdominal discomfort [Recovering/Resolving]

NARRATIVE: CASE EVENT DATE: 20210801
